FAERS Safety Report 8302782-5 (Version None)
Quarter: 2012Q2

REPORT INFORMATION
  Report Type: 
  Country: None (occurrence: None)
  Receive Date: 20120420
  Receipt Date: 20110718
  Transmission Date: 20120825
  Serious: No
  Sender: FDA-Public Use
  Company Number: US-PFIZER INC-K201100821

PATIENT
  Sex: Female
  Weight: 65.76 kg

DRUGS (5)
  1. AVINZA [Suspect]
     Indication: PAIN
     Dosage: 90 MG, 1X/DAY
     Route: 048
     Dates: start: 20110601, end: 20110601
  2. MORPHINE SULFATE [Concomitant]
     Dosage: UNK
  3. MEDROL [Concomitant]
     Indication: ARTHRITIS
     Dosage: UNK
  4. TYLENOL (CAPLET) [Concomitant]
     Indication: BREAKTHROUGH PAIN
     Dosage: UNK
  5. PREMARIN [Concomitant]
     Dosage: UNK

REACTIONS (3)
  - PRURITUS [None]
  - DRUG INEFFECTIVE [None]
  - URTICARIA [None]
